FAERS Safety Report 21156716 (Version 1)
Quarter: 2022Q3

REPORT INFORMATION
  Report Type: Spontaneous
  Country: US (occurrence: None)
  Receive Date: 20220801
  Receipt Date: 20220801
  Transmission Date: 20221027
  Serious: No
  Sender: FDA-Public Use
  Company Number: None

PATIENT
  Sex: Female

DRUGS (1)
  1. OTEZLA [Suspect]
     Active Substance: APREMILAST
     Indication: Psoriasis
     Dosage: 30MG  2 TIMES A DAY BY MOUTH?
     Route: 048
     Dates: start: 20220516

REACTIONS (2)
  - Drug ineffective [None]
  - Condition aggravated [None]
